FAERS Safety Report 5038507-9 (Version None)
Quarter: 2006Q2

REPORT INFORMATION
  Report Type: 
  Country: None (occurrence: None)
  Receive Date: 20060629
  Receipt Date: 20060531
  Transmission Date: 20061013
  Serious: Yes (Death)
  Sender: FDA-Public Use
  Company Number: 2006AP02850

PATIENT
  Age: 16221 Day
  Sex: Male

DRUGS (5)
  1. SEROQUEL [Suspect]
     Indication: BIPOLAR DISORDER
     Route: 048
  2. EFFEXOR [Suspect]
  3. EPILIM [Suspect]
  4. ASMOL CFC-FREE [Concomitant]
     Route: 055
  5. ACETAMINOPHEN W/ CODEINE [Concomitant]
     Route: 048

REACTIONS (1)
  - DEATH [None]
